FAERS Safety Report 14492329 (Version 3)
Quarter: 2018Q2

REPORT INFORMATION
  Report Type: Report from Study
  Country: PL (occurrence: PL)
  Receive Date: 20180206
  Receipt Date: 20180427
  Transmission Date: 20180711
  Serious: Yes (Hospitalization)
  Sender: FDA-Public Use
  Company Number: PL-UCBSA-2018003463

PATIENT
  Age: 49 Year
  Sex: Female
  Weight: 117 kg

DRUGS (8)
  1. CERTOLIZUMAB PEGOL [Suspect]
     Active Substance: CERTOLIZUMAB PEGOL
     Indication: AXIAL SPONDYLOARTHRITIS
     Dosage: 200 MG, EV 2 WEEKS(QOW)
     Route: 058
     Dates: start: 20170515, end: 201801
  2. TROPICAMIDE. [Concomitant]
     Active Substance: TROPICAMIDE
     Indication: EPISCLERITIS
     Dosage: UNK, ONCE DAILY (QD)
     Route: 047
     Dates: start: 20180110
  3. KETOPROFEN. [Concomitant]
     Active Substance: KETOPROFEN
     Indication: AXIAL SPONDYLOARTHRITIS
     Dosage: 100 MG, ONCE DAILY (QD)
     Route: 048
     Dates: start: 20170222
  4. TROPICAMIDE. [Concomitant]
     Active Substance: TROPICAMIDE
     Indication: UVEITIS
  5. TOBRADEX [Concomitant]
     Active Substance: DEXAMETHASONE\TOBRAMYCIN
     Indication: EPISCLERITIS
     Dosage: UNK, 4X/DAY (QID)
     Route: 047
     Dates: start: 20180110
  6. OMEPRAZOLE. [Concomitant]
     Active Substance: OMEPRAZOLE
     Indication: PROPHYLAXIS
     Dosage: 20 MG, Q12H
     Route: 048
     Dates: start: 20110208
  7. SULFASALAZINE. [Concomitant]
     Active Substance: SULFASALAZINE
     Indication: AXIAL SPONDYLOARTHRITIS
     Dosage: 1000 MG, Q12H
     Route: 048
     Dates: start: 20110208
  8. CERTOLIZUMAB PEGOL [Suspect]
     Active Substance: CERTOLIZUMAB PEGOL
     Dosage: 200 MG, EV 2 WEEKS(QOW)
     Route: 058
     Dates: start: 20180131

REACTIONS (1)
  - Uveitis [Recovered/Resolved]

NARRATIVE: CASE EVENT DATE: 20180227
